FAERS Safety Report 23838988 (Version 4)
Quarter: 2024Q2

REPORT INFORMATION
  Report Type: Report from Study
  Country: CA (occurrence: CA)
  Receive Date: 20240509
  Receipt Date: 20240530
  Transmission Date: 20240716
  Serious: Yes (Death, Hospitalization, Other)
  Sender: FDA-Public Use
  Company Number: CA-TAIHOP-2024-002585

PATIENT
  Age: 58 Year
  Sex: Male

DRUGS (1)
  1. LONSURF [Suspect]
     Active Substance: TIPIRACIL HYDROCHLORIDE\TRIFLURIDINE
     Indication: Metastatic gastric cancer
     Dosage: FORM STRENGTH, DOSE, FREQUENCY, CYCLE WAS UNKNOWN
     Route: 048
     Dates: start: 20240207

REACTIONS (7)
  - Disease progression [Fatal]
  - Pneumonia [Unknown]
  - Haemoglobin decreased [Unknown]
  - Blood potassium decreased [Recovering/Resolving]
  - Febrile neutropenia [Unknown]
  - Platelet count decreased [Unknown]
  - White blood cell count decreased [Unknown]

NARRATIVE: CASE EVENT DATE: 20240305
